FAERS Safety Report 15935964 (Version 1)
Quarter: 2019Q1

REPORT INFORMATION
  Report Type: Spontaneous
  Country: US (occurrence: US)
  Receive Date: 20190208
  Receipt Date: 20190208
  Transmission Date: 20190417
  Serious: Yes (Other)
  Sender: FDA-Public Use
  Company Number: US-SUN PHARMACEUTICAL INDUSTRIES LTD-2019R1-198625

PATIENT
  Sex: Female

DRUGS (1)
  1. DULOXETINE. [Suspect]
     Active Substance: DULOXETINE
     Indication: PRODUCT USED FOR UNKNOWN INDICATION
     Dosage: UNK
     Route: 065

REACTIONS (11)
  - Nightmare [Unknown]
  - Irritability [Unknown]
  - Neuropathy peripheral [Unknown]
  - Aggression [Unknown]
  - Dizziness [Unknown]
  - Abnormal behaviour [Unknown]
  - Hyperhidrosis [Unknown]
  - Myalgia [Unknown]
  - Headache [Unknown]
  - Weight increased [Unknown]
  - Hypertension [Unknown]
